FAERS Safety Report 9445573 (Version 3)
Quarter: 2013Q3

REPORT INFORMATION
  Report Type: Spontaneous
  Country: US (occurrence: US)
  Receive Date: 20130807
  Receipt Date: 20130925
  Transmission Date: 20140515
  Serious: Yes (Other)
  Sender: FDA-Public Use
  Company Number: US-PURDUE-USA-2013-0105154

PATIENT
  Age: 52 Year
  Sex: Male
  Weight: 63.49 kg

DRUGS (2)
  1. OXYCONTIN (NDA 22-272) [Suspect]
     Indication: PAIN
     Dosage: 20 MG, BID
     Route: 048
     Dates: start: 201306
  2. VICOPROFEN [Concomitant]
     Indication: PAIN
     Dosage: 7.5/200 MG, AS NEEDED
     Route: 048
     Dates: start: 201306

REACTIONS (17)
  - Cerebrovascular accident [Unknown]
  - Incoherent [Not Recovered/Not Resolved]
  - Aphagia [Unknown]
  - Pain [Recovered/Resolved]
  - Pain in extremity [Not Recovered/Not Resolved]
  - Influenza like illness [Unknown]
  - Headache [Not Recovered/Not Resolved]
  - Hyperhidrosis [Recovered/Resolved]
  - Malaise [Not Recovered/Not Resolved]
  - Vision blurred [Not Recovered/Not Resolved]
  - Drug withdrawal syndrome [Unknown]
  - Drug ineffective [Unknown]
  - Dysgeusia [Unknown]
  - Feeling abnormal [Unknown]
  - Insomnia [Unknown]
  - Nausea [Recovered/Resolved]
  - Vomiting [Recovered/Resolved]
